FAERS Safety Report 20805249 (Version 5)
Quarter: 2023Q2

REPORT INFORMATION
  Report Type: Report from Study
  Country: US (occurrence: US)
  Receive Date: 20220509
  Receipt Date: 20230612
  Transmission Date: 20230722
  Serious: Yes (Hospitalization, Other)
  Sender: FDA-Public Use
  Company Number: US-ABBVIE-22K-163-4385376-00

PATIENT
  Sex: Female

DRUGS (3)
  1. IMBRUVICA [Suspect]
     Active Substance: IBRUTINIB
     Indication: Waldenstrom^s macroglobulinaemia
     Route: 048
     Dates: start: 2022, end: 2022
  2. IMBRUVICA [Suspect]
     Active Substance: IBRUTINIB
     Indication: Waldenstrom^s macroglobulinaemia
     Dosage: 280 MILLIGRAM
     Route: 048
     Dates: start: 2022
  3. IMBRUVICA [Suspect]
     Active Substance: IBRUTINIB
     Indication: Waldenstrom^s macroglobulinaemia
     Dosage: FORM STRENGTH: 280 MG
     Route: 048
     Dates: start: 20180627

REACTIONS (17)
  - Hip fracture [Unknown]
  - Laboratory test abnormal [Unknown]
  - Food allergy [Unknown]
  - Skin discolouration [Unknown]
  - Intentional product misuse [Unknown]
  - Fall [Unknown]
  - Glaucoma [Unknown]
  - Catheter removal [Unknown]
  - Fatigue [Unknown]
  - Gastric disorder [Unknown]
  - Nausea [Unknown]
  - Back disorder [Unknown]
  - Hypophagia [Unknown]
  - Neck pain [Unknown]
  - Contusion [Unknown]
  - Weight decreased [Unknown]
  - Rash macular [Unknown]

NARRATIVE: CASE EVENT DATE: 20220101
